FAERS Safety Report 23771068 (Version 2)
Quarter: 2024Q2

REPORT INFORMATION
  Report Type: Spontaneous
  Country: US (occurrence: US)
  Receive Date: 20240423
  Receipt Date: 20240530
  Transmission Date: 20240716
  Serious: No
  Sender: FDA-Public Use
  Company Number: US-JNJFOC-20240456126

PATIENT
  Age: 6 Year
  Sex: Male

DRUGS (4)
  1. RISPERDAL [Suspect]
     Active Substance: RISPERIDONE
     Indication: Product used for unknown indication
     Route: 048
  2. RISPERDAL [Suspect]
     Active Substance: RISPERIDONE
     Route: 048
     Dates: start: 20051019
  3. RISPERDAL [Suspect]
     Active Substance: RISPERIDONE
     Dosage: 0.5 MG BID FOR A WEEK AND THEN EVENING DOSE FOR ANOTHER WEEK AND THEN DISCONTINUE
     Route: 048
     Dates: start: 20061107, end: 200611
  4. RISPERDAL [Suspect]
     Active Substance: RISPERIDONE
     Route: 048
     Dates: start: 20061214

REACTIONS (4)
  - Sedation [Recovered/Resolved]
  - Increased appetite [Recovered/Resolved]
  - Weight increased [Recovered/Resolved]
  - Drug ineffective [Unknown]

NARRATIVE: CASE EVENT DATE: 20060101
